FAERS Safety Report 5125998-8 (Version None)
Quarter: 2006Q4

REPORT INFORMATION
  Report Type: 
  Country: None (occurrence: None)
  Receive Date: 20061012
  Receipt Date: 20060929
  Transmission Date: 20070319
  Serious: Yes (Hospitalization)
  Sender: FDA-Public Use
  Company Number: PHRM2006FR02731

PATIENT
  Age: 72 Year
  Sex: Female

DRUGS (7)
  1. DEROXAT [Concomitant]
  2. DURAGESIC-100 [Concomitant]
     Dosage: 100 UG, TID
     Route: 062
  3. TARCEVA [Concomitant]
     Dosage: 150 MG, QD
     Route: 048
  4. VENTOLIN [Concomitant]
     Dosage: 1 DF, PRN
  5. LEXOMIL [Concomitant]
     Dosage: 1 DF, PRN
     Route: 048
  6. ZOMETA [Suspect]
     Indication: METASTASES TO BONE
     Dosage: 4 MG, QMO
     Route: 042
     Dates: start: 20040601, end: 20060515
  7. NORLEVO [Concomitant]

REACTIONS (3)
  - BONE SWELLING [None]
  - OSTEOLYSIS [None]
  - OSTEONECROSIS [None]
